FAERS Safety Report 21351902 (Version 1)
Quarter: 2022Q3

REPORT INFORMATION
  Report Type: Report from Study
  Country: TW (occurrence: None)
  Receive Date: 20220920
  Receipt Date: 20220920
  Transmission Date: 20221026
  Serious: Yes (Death, Life-Threatening, Hospitalization, Disabling, Congenital Anomaly, Other)
  Sender: FDA-Public Use
  Company Number: 2022A312535

PATIENT
  Age: 68 Year
  Sex: Male

DRUGS (5)
  1. CISPLATIN [Suspect]
     Active Substance: CISPLATIN
     Indication: Oesophageal squamous cell carcinoma
     Dosage: 75 MG/M2
     Route: 065
     Dates: start: 20220822, end: 20220822
  2. FLUOROURACIL [Suspect]
     Active Substance: FLUOROURACIL
     Indication: Oesophageal squamous cell carcinoma
     Dosage: 750 MG/M2
     Route: 065
     Dates: start: 20220822, end: 20220826
  3. DURVALUMAB [Suspect]
     Active Substance: DURVALUMAB
     Indication: Oesophageal squamous cell carcinoma
     Dosage: 1500 MG
     Route: 042
     Dates: start: 20220822, end: 20220822
  4. LANSOPRAZOLE (TAKEPRON) [Concomitant]
     Indication: Gastrooesophageal reflux disease
     Route: 048
     Dates: start: 20220808
  5. CALCIUM POLYSTYRENE SULFONATE (KALIMATE) [Concomitant]
     Indication: Electrolyte imbalance
     Route: 048
     Dates: start: 20220829

REACTIONS (2)
  - Acute kidney injury [Fatal]
  - Drug-induced liver injury [Not Recovered/Not Resolved]

NARRATIVE: CASE EVENT DATE: 20220829
